FAERS Safety Report 8445335-0 (Version None)
Quarter: 2012Q2

REPORT INFORMATION
  Report Type: 
  Country: None (occurrence: None)
  Receive Date: 20120611
  Receipt Date: 20120531
  Transmission Date: 20120825
  Serious: Yes (Hospitalization, Other)
  Sender: FDA-Public Use
  Company Number: AUR-APL-2012-01733

PATIENT
  Age: 77 Year
  Sex: Male

DRUGS (7)
  1. MEMANTINE HCL [Concomitant]
  2. TORSEMIDE [Concomitant]
  3. DIGITOXIN TAB [Concomitant]
  4. RISPERIDONE [Suspect]
     Indication: PRODUCT USED FOR UNKNOWN INDICATION
     Dosage: 0.75 MG (0.25 MG, 3 IN 1 D) (1.5 MG, 1 D)
     Dates: start: 20110801
  5. METOPROLOL SUCCINATE [Concomitant]
  6. ASPIRIN [Concomitant]
  7. DORZOLAMIDE [Concomitant]

REACTIONS (17)
  - MEMORY IMPAIRMENT [None]
  - INCONTINENCE [None]
  - MENTAL DISORDER [None]
  - DEMENTIA ALZHEIMER'S TYPE [None]
  - PARKINSON'S DISEASE [None]
  - EXTRAPYRAMIDAL DISORDER [None]
  - FALL [None]
  - DISORIENTATION [None]
  - PSYCHOTIC DISORDER [None]
  - HALLUCINATION [None]
  - GAZE PALSY [None]
  - GAIT DISTURBANCE [None]
  - COGNITIVE DISORDER [None]
  - HYPOACUSIS [None]
  - PLEUROTHOTONUS [None]
  - RESTLESSNESS [None]
  - CEREBROVASCULAR DISORDER [None]
